FAERS Safety Report 25703341 (Version 1)
Quarter: 2025Q3

REPORT INFORMATION
  Report Type: Spontaneous
  Country: US (occurrence: US)
  Receive Date: 20250820
  Receipt Date: 20250820
  Transmission Date: 20251020
  Serious: No
  Sender: ROCHE
  Company Number: US-ROCHE-10000363851

PATIENT
  Sex: Female

DRUGS (1)
  1. ESBRIET [Suspect]
     Active Substance: PIRFENIDONE
     Indication: Idiopathic pulmonary fibrosis
     Dosage: SHE STATES THAT SHE TOOK 1 PILL THREE TIMES A DAY FOR ABOUT A?WEEK AND THEN WENT UP TO 2 PILLS THREE
     Route: 065

REACTIONS (1)
  - Fatigue [Unknown]
